FAERS Safety Report 10707214 (Version 3)
Quarter: 2015Q1

REPORT INFORMATION
  Report Type: Report from Study
  Country: BE (occurrence: BE)
  Receive Date: 20150113
  Receipt Date: 20150121
  Transmission Date: 20150721
  Serious: Yes (Hospitalization)
  Sender: FDA-Public Use
  Company Number: BE-JNJFOC-20081200011

PATIENT
  Age: 58 Year
  Sex: Female
  Weight: 78 kg

DRUGS (12)
  1. PEGASYS [Suspect]
     Active Substance: PEGINTERFERON ALFA-2A
     Indication: CHRONIC HEPATITIS C
     Route: 058
     Dates: start: 20081029
  2. COPEGUS [Suspect]
     Active Substance: RIBAVIRIN
     Indication: CHRONIC HEPATITIS C
     Dosage: 600MG/MORNING AND 200MG/EVENING
     Route: 048
     Dates: start: 20081114, end: 20081114
  3. NATRIUM LEVOTHYROXINE [Concomitant]
     Indication: AUTOIMMUNE THYROIDITIS
     Route: 048
  4. ZOLPIDEM HEMITARTRAAT [Concomitant]
     Indication: SLEEP DISORDER
     Route: 048
  5. COPEGUS [Suspect]
     Active Substance: RIBAVIRIN
     Indication: CHRONIC HEPATITIS C
     Dosage: 400MG/MORNING
     Route: 048
     Dates: start: 20081120, end: 20081120
  6. METOPROLAT TARTRAAT [Concomitant]
     Route: 048
  7. COPEGUS [Suspect]
     Active Substance: RIBAVIRIN
     Indication: CHRONIC HEPATITIS C
     Dosage: 600MG/MORNING AND 400 MG/EVENING
     Route: 048
     Dates: start: 20081029, end: 20081113
  8. COPEGUS [Suspect]
     Active Substance: RIBAVIRIN
     Indication: CHRONIC HEPATITIS C
     Route: 048
     Dates: start: 20081121
  9. TMC435350 [Suspect]
     Active Substance: SIMEPREVIR
     Indication: CHRONIC HEPATITIS C
     Route: 048
     Dates: start: 20081029, end: 20081125
  10. COPEGUS [Suspect]
     Active Substance: RIBAVIRIN
     Indication: CHRONIC HEPATITIS C
     Dosage: 400MG/MORNING AND 200 MG/EVENING
     Route: 048
     Dates: start: 20081118, end: 20081119
  11. COPEGUS [Suspect]
     Active Substance: RIBAVIRIN
     Indication: CHRONIC HEPATITIS C
     Dosage: 400MG/MORNING AND 400MG/EVENING
     Route: 048
     Dates: start: 20081115, end: 20081117
  12. PARACETAMOL [Concomitant]
     Active Substance: ACETAMINOPHEN
     Route: 048
     Dates: start: 20081030

REACTIONS (1)
  - Cupulolithiasis [Recovered/Resolved]

NARRATIVE: CASE EVENT DATE: 20081127
